FAERS Safety Report 9571595 (Version 2)
Quarter: 2013Q4

REPORT INFORMATION
  Report Type: Spontaneous
  Country: BE (occurrence: None)
  Receive Date: 20130927
  Receipt Date: 20131017
  Transmission Date: 20140711
  Serious: Yes (Hospitalization)
  Sender: FDA-Public Use
  Company Number: COR_00019_2013

PATIENT
  Age: 53 Year
  Sex: Male

DRUGS (8)
  1. LOMUSTINE [Suspect]
     Indication: GLIOBLASTOMA
     Dosage: 100 M2, CYCLICALLY (FIRST DOSE)), ORAL
     Route: 048
     Dates: start: 20130225
  2. BLINDED STUDY DRUG [Suspect]
     Indication: GLIOBLASTOMA
     Dosage: (DF) UNSPECIFIED DOSE EVERY 6 WEEKS?
     Dates: start: 20130225
  3. METFORMIN [Concomitant]
  4. INSULIN HUMAN [Concomitant]
  5. METHYLPREFNISOLONE [Concomitant]
  6. PANTOMED /01263204/ [Concomitant]
  7. KEPPRA [Concomitant]
  8. ZOLPIDEM [Concomitant]

REACTIONS (6)
  - Asthenia [None]
  - Fatigue [None]
  - Pneumonia [None]
  - Pancytopenia [None]
  - Oxygen saturation decreased [None]
  - General physical health deterioration [None]
